FAERS Safety Report 21362502 (Version 1)
Quarter: 2022Q3

REPORT INFORMATION
  Report Type: Report from Study
  Country: GB (occurrence: GB)
  Receive Date: 20220922
  Receipt Date: 20220922
  Transmission Date: 20221026
  Serious: Yes (Hospitalization, Other)
  Sender: FDA-Public Use
  Company Number: GB-CELLTRION INC.-2022GB015167

PATIENT

DRUGS (3)
  1. RITUXIMAB [Suspect]
     Active Substance: RITUXIMAB
     Indication: Follicular lymphoma
     Dosage: 650 MG, EVERY 28 DAYS (THE LAST DOSE OF RITUXIMAB AND LENALIDOMIDE PRIOR TO THE FEBRILE NEUTROPENIA
     Route: 042
     Dates: start: 20220615
  2. TAFASITAMAB [Suspect]
     Active Substance: TAFASITAMAB
     Indication: Follicular lymphoma
     Dosage: 1 DOSE EVERY 1 WEEK (THE LAST DOSE OF INCMOR00208/PLACEBO PRIOR TO THE SAE OF FEBRILE NEUTROPENIA (F
     Route: 042
  3. LENALIDOMIDE [Suspect]
     Active Substance: LENALIDOMIDE
     Indication: Follicular lymphoma
     Dosage: 15 MG EVERY 1 DAY (THE LAST DOSE OF RITUXIMAB AND LENALIDOMIDE PRIOR TO THE SERIOUS ADVERSE EVENT (S
     Route: 048
     Dates: start: 20220614, end: 20220819

REACTIONS (2)
  - Febrile neutropenia [Not Recovered/Not Resolved]
  - Off label use [Unknown]

NARRATIVE: CASE EVENT DATE: 20220731
